FAERS Safety Report 10606976 (Version 1)
Quarter: 2014Q4

REPORT INFORMATION
  Report Type: Spontaneous
  Country: US (occurrence: None)
  Receive Date: 20141124
  Receipt Date: 20141124
  Transmission Date: 20150529
  Serious: Yes (Hospitalization)
  Sender: FDA-Public Use
  Company Number: None

PATIENT
  Age: 84 Year
  Sex: Male
  Weight: 78.8 kg

DRUGS (11)
  1. INSPRA [Concomitant]
     Active Substance: EPLERENONE
  2. GLIMEPIRIDE. [Suspect]
     Active Substance: GLIMEPIRIDE
     Indication: HYPERGLYCAEMIA
     Dosage: CHRONIC WITH RECENT INCREASE
     Route: 048
  3. WARFARIN [Concomitant]
     Active Substance: WARFARIN
  4. AMIODARONE [Concomitant]
     Active Substance: AMIODARONE
  5. BUMEX [Concomitant]
     Active Substance: BUMETANIDE
  6. PRAVACHOL [Concomitant]
     Active Substance: PRAVASTATIN SODIUM
  7. OMEPRAZOLE. [Concomitant]
     Active Substance: OMEPRAZOLE
  8. COREG [Concomitant]
     Active Substance: CARVEDILOL
  9. LOSARTAN [Concomitant]
     Active Substance: LOSARTAN
  10. ALLOPURINOL. [Concomitant]
     Active Substance: ALLOPURINOL
  11. ASA [Concomitant]
     Active Substance: ASPIRIN

REACTIONS (4)
  - Chronic kidney disease [None]
  - Renal failure [None]
  - Hypoglycaemia [None]
  - Cardiac failure [None]

NARRATIVE: CASE EVENT DATE: 20140607
